FAERS Safety Report 7664084-X (Version None)
Quarter: 2011Q3

REPORT INFORMATION
  Report Type: 
  Country: None (occurrence: None)
  Receive Date: 20110805
  Receipt Date: 20100820
  Transmission Date: 20111222
  Serious: No
  Sender: FDA-Public Use
  Company Number: US-ABBOTT-10P-163-0665612-00

PATIENT
  Sex: Female
  Weight: 86.714 kg

DRUGS (1)
  1. NIASPAN [Suspect]
     Indication: BLOOD TRIGLYCERIDES INCREASED
     Route: 048
     Dates: start: 20100601, end: 20100602

REACTIONS (4)
  - BURNING SENSATION [None]
  - HEADACHE [None]
  - ASTHENIA [None]
  - GAIT DISTURBANCE [None]
